FAERS Safety Report 18156330 (Version 3)
Quarter: 2020Q3

REPORT INFORMATION
  Report Type: Spontaneous
  Country: US (occurrence: US)
  Receive Date: 20200817
  Receipt Date: 20200904
  Transmission Date: 20201103
  Serious: Yes (Death, Hospitalization, Other)
  Sender: FDA-Public Use
  Company Number: US-ALLERGAN-2030357US

PATIENT
  Sex: Female

DRUGS (3)
  1. KLONOPIN [Concomitant]
     Active Substance: CLONAZEPAM
  2. BOTOX [Suspect]
     Active Substance: ONABOTULINUMTOXINA
     Indication: MIGRAINE
     Dosage: UNK UNK, SINGLE
     Dates: start: 201908, end: 201908
  3. XANAX [Concomitant]
     Active Substance: ALPRAZOLAM

REACTIONS (12)
  - Renal failure [Unknown]
  - Loss of consciousness [Unknown]
  - Cardiac disorder [Unknown]
  - Injury [Unknown]
  - Post-traumatic stress disorder [Unknown]
  - Brain death [Unknown]
  - Apnoea [Unknown]
  - Hypoxia [Fatal]
  - Seizure [Unknown]
  - Self-injurious ideation [Unknown]
  - Hepatic failure [Unknown]
  - Intracranial aneurysm [Fatal]

NARRATIVE: CASE EVENT DATE: 2019
